FAERS Safety Report 16965232 (Version 1)
Quarter: 2019Q4

REPORT INFORMATION
  Report Type: Spontaneous
  Country: US (occurrence: US)
  Receive Date: 20191028
  Receipt Date: 20191028
  Transmission Date: 20200122
  Serious: Yes (Hospitalization, Other)
  Sender: FDA-Public Use
  Company Number: US-SA-2019SA297299

PATIENT
  Age: 46 Year
  Sex: Male

DRUGS (8)
  1. COLESEVELAM [Concomitant]
     Active Substance: COLESEVELAM
  2. NOVOLOG [Concomitant]
     Active Substance: INSULIN ASPART
  3. ISOSORBIDE MONONITRATE. [Concomitant]
     Active Substance: ISOSORBIDE MONONITRATE
  4. PRALUENT [Suspect]
     Active Substance: ALIROCUMAB
  5. PRASUGREL. [Concomitant]
     Active Substance: PRASUGREL
  6. ROSUVASTATIN. [Concomitant]
     Active Substance: ROSUVASTATIN
  7. METOPROLOL SUCCINATE. [Concomitant]
     Active Substance: METOPROLOL SUCCINATE
  8. LABETALOL [Concomitant]
     Active Substance: LABETALOL\LABETALOL HYDROCHLORIDE

REACTIONS (3)
  - Cardiac arrest [Unknown]
  - Pulmonary oedema [Unknown]
  - Dialysis [Unknown]
